FAERS Safety Report 5332875-6 (Version None)
Quarter: 2007Q2

REPORT INFORMATION
  Report Type: 
  Country: None (occurrence: None)
  Receive Date: 20070521
  Receipt Date: 20070502
  Transmission Date: 20071010
  Serious: Yes (Death)
  Sender: FDA-Public Use
  Company Number: DAV-AE-ACY-07-013

PATIENT
  Age: 45 Year
  Sex: Female

DRUGS (2)
  1. ACYCLOVIR [Suspect]
     Indication: ENCEPHALITIS
  2. ACYCLOVIR [Suspect]
     Indication: HUMAN HERPESVIRUS 6 INFECTION

REACTIONS (4)
  - ACUTE GRAFT VERSUS HOST DISEASE [None]
  - COMPLICATIONS OF TRANSPLANT SURGERY [None]
  - DRUG INEFFECTIVE [None]
  - ENCEPHALITIS [None]
